FAERS Safety Report 11822775 (Version 1)
Quarter: 2015Q4

REPORT INFORMATION
  Report Type: Spontaneous
  Country: JP (occurrence: JP)
  Receive Date: 20151210
  Receipt Date: 20151210
  Transmission Date: 20160305
  Serious: Yes (Other)
  Sender: FDA-Public Use
  Company Number: JP-GILEAD-2015-0187524

PATIENT
  Age: 62 Year
  Sex: Male

DRUGS (3)
  1. EPIVIR [Suspect]
     Active Substance: LAMIVUDINE
     Indication: HIV INFECTION
     Route: 048
  2. EFAVIRENZ [Suspect]
     Active Substance: EFAVIRENZ
     Indication: HIV INFECTION
     Route: 048
  3. VIREAD [Suspect]
     Active Substance: TENOFOVIR DISOPROXIL FUMARATE
     Indication: HIV INFECTION
     Route: 048

REACTIONS (2)
  - Non-alcoholic steatohepatitis [Unknown]
  - Lipodystrophy acquired [Unknown]
